FAERS Safety Report 4970688-5 (Version None)
Quarter: 2006Q2

REPORT INFORMATION
  Report Type: 
  Country: None (occurrence: None)
  Receive Date: 20060412
  Receipt Date: 20060403
  Transmission Date: 20061013
  Serious: Yes (Other)
  Sender: FDA-Public Use
  Company Number: PHNR2006AU00653

PATIENT
  Sex: Female

DRUGS (1)
  1. ZOMETA [Suspect]
     Dosage: UNK, QMO

REACTIONS (4)
  - BLOOD CREATININE INCREASED [None]
  - BONE DISORDER [None]
  - CONFUSIONAL STATE [None]
  - HYPERCALCAEMIA [None]
